FAERS Safety Report 6556897-2 (Version None)
Quarter: 2010Q1

REPORT INFORMATION
  Report Type: 
  Country: None (occurrence: None)
  Receive Date: 20100126
  Receipt Date: 20100111
  Transmission Date: 20100710
  Serious: Yes (Other)
  Sender: FDA-Public Use
  Company Number: 2010BI001959

PATIENT
  Age: 47 Year

DRUGS (6)
  1. ZEVALIN [Suspect]
     Indication: NON-HODGKIN'S LYMPHOMA
  2. RITUXIMAB [Concomitant]
  3. CYCLOSPORINE [Concomitant]
  4. FLUDARABINE [Concomitant]
  5. LITHIUM CARBONATE [Concomitant]
  6. PREV MEDS [Concomitant]

REACTIONS (4)
  - CONFUSIONAL STATE [None]
  - DRUG TOXICITY [None]
  - NEUROLOGICAL SYMPTOM [None]
  - TREMOR [None]
